FAERS Safety Report 8928931 (Version 2)
Quarter: 2012Q4

REPORT INFORMATION
  Report Type: Report from Study
  Country: JP (occurrence: RS)
  Receive Date: 20121128
  Receipt Date: 20121218
  Transmission Date: 20130627
  Serious: Yes (Hospitalization)
  Sender: FDA-Public Use
  Company Number: RS-BRISTOL-MYERS SQUIBB COMPANY-17162066

PATIENT
  Age: 18 Year
  Sex: Male

DRUGS (2)
  1. ARIPIPRAZOLE [Suspect]
     Indication: SCHIZOPHRENIA
     Route: 048
     Dates: start: 20120314, end: 20121107
  2. LORAZEPAM [Concomitant]
     Route: 048
     Dates: start: 20121107

REACTIONS (1)
  - Schizophrenia [Recovered/Resolved]
